FAERS Safety Report 4443520-6 (Version None)
Quarter: 2004Q3

REPORT INFORMATION
  Report Type: 
  Country: None (occurrence: None)
  Receive Date: 20040901
  Receipt Date: 20040816
  Transmission Date: 20050211
  Serious: Yes (Hospitalization)
  Sender: FDA-Public Use
  Company Number: 2004-BP-00598BP

PATIENT
  Age: 94 Year
  Sex: Male
  Weight: 54.4 kg

DRUGS (7)
  1. FLOMAX [Suspect]
     Indication: BENIGN PROSTATIC HYPERPLASIA
     Dosage: SEE IMAGE
     Route: 048
     Dates: start: 20031223
  2. FLOMAX [Suspect]
     Indication: BENIGN PROSTATIC HYPERPLASIA
     Dosage: SEE IMAGE
     Route: 048
     Dates: start: 20040125
  3. BUSPAR [Concomitant]
  4. KLONOPIN [Concomitant]
  5. DHEA (PRASTERONE0 [Concomitant]
  6. STOOL SOFTENER (DOCUSATE SODIUM) [Concomitant]
  7. CENTRUM SILVER (CENTRUM SILVER) [Concomitant]

REACTIONS (12)
  - ANXIETY [None]
  - BLOOD URINE [None]
  - DYSURIA [None]
  - INFECTION [None]
  - INSOMNIA [None]
  - NAUSEA [None]
  - POLLAKIURIA [None]
  - POST PROCEDURAL COMPLICATION [None]
  - STOMACH DISCOMFORT [None]
  - URINARY RETENTION [None]
  - URINE FLOW DECREASED [None]
  - URINE OUTPUT DECREASED [None]
